FAERS Safety Report 7340589-6 (Version None)
Quarter: 2011Q1

REPORT INFORMATION
  Report Type: 
  Country: None (occurrence: None)
  Receive Date: 20110309
  Receipt Date: 20110304
  Transmission Date: 20110831
  Serious: Yes (Death)
  Sender: FDA-Public Use
  Company Number: PHHY2011IT18790

PATIENT
  Sex: Male
  Weight: 74 kg

DRUGS (1)
  1. CERTICAN [Suspect]
     Dosage: 1 MG/DAY
     Route: 048
     Dates: start: 20070830

REACTIONS (1)
  - CACHEXIA [None]
